FAERS Safety Report 4966082-3 (Version None)
Quarter: 2006Q2

REPORT INFORMATION
  Report Type: 
  Country: None (occurrence: None)
  Receive Date: 20060403
  Receipt Date: 20060323
  Transmission Date: 20061013
  Serious: Yes (Death, Hospitalization)
  Sender: FDA-Public Use
  Company Number: 2006042014

PATIENT
  Age: 89 Year
  Sex: Female

DRUGS (5)
  1. CELEBREX [Suspect]
     Indication: OSTEOARTHRITIS
     Dosage: 200 MG (200 MG, 1 IN 1 D),
  2. KARDEGIC (ACETYLSALICYLATE LYSINE) [Concomitant]
  3. FUROSEMIDE [Concomitant]
  4. NITROGLYCERIN [Concomitant]
  5. RAMIPRIL [Concomitant]

REACTIONS (4)
  - ACUTE PULMONARY OEDEMA [None]
  - INCORRECT DRUG ADMINISTRATION DURATION [None]
  - MYOCARDIAL INFARCTION [None]
  - TREATMENT NONCOMPLIANCE [None]
